FAERS Safety Report 12647532 (Version 1)
Quarter: 2016Q3

REPORT INFORMATION
  Report Type: Spontaneous
  Country: FR (occurrence: FR)
  Receive Date: 20160812
  Receipt Date: 20160812
  Transmission Date: 20161109
  Serious: Yes (Death)
  Sender: FDA-Public Use
  Company Number: PHHY2016FR109957

PATIENT
  Age: 8 Year
  Sex: Male

DRUGS (1)
  1. EVEROLIMUS [Suspect]
     Active Substance: EVEROLIMUS
     Indication: GLIOMA
     Dosage: UNK
     Route: 065

REACTIONS (3)
  - Metastatic neoplasm [Fatal]
  - Product use issue [Unknown]
  - Malignant neoplasm progression [Fatal]
